FAERS Safety Report 8157099-9 (Version None)
Quarter: 2012Q1

REPORT INFORMATION
  Report Type: 
  Country: None (occurrence: None)
  Receive Date: 20120222
  Receipt Date: 20120215
  Transmission Date: 20120608
  Serious: Yes (Other)
  Sender: FDA-Public Use
  Company Number: FR-ABBOTT-12P-056-0904941-00

PATIENT
  Sex: Female

DRUGS (1)
  1. HUMIRA [Suspect]
     Indication: CROHN'S DISEASE
     Route: 058
     Dates: start: 20100301

REACTIONS (4)
  - SYSTEMIC LUPUS ERYTHEMATOSUS [None]
  - ANTINUCLEAR ANTIBODY POSITIVE [None]
  - SPONDYLITIS [None]
  - MUSCULOSKELETAL PAIN [None]
